FAERS Safety Report 5919310-1 (Version None)
Quarter: 2008Q4

REPORT INFORMATION
  Report Type: 
  Country: None (occurrence: None)
  Receive Date: 20081015
  Receipt Date: 20081006
  Transmission Date: 20090506
  Serious: Yes (Hospitalization, Other)
  Sender: FDA-Public Use
  Company Number: PHHY2008FR18481

PATIENT
  Sex: Male

DRUGS (5)
  1. CERTICAN [Suspect]
     Indication: HEART TRANSPLANT
     Dosage: 0.75 MG PER DAY
     Route: 048
     Dates: start: 20070903, end: 20080623
  2. NEORAL [Suspect]
     Indication: HEART TRANSPLANT
     Dosage: 90 MG PER DAY
     Route: 048
     Dates: start: 19871129
  3. CORTANCYL [Concomitant]
     Indication: HEART TRANSPLANT
     Dosage: 5 MG PER DAY
     Dates: start: 19871129
  4. ELISOR [Concomitant]
     Dosage: 20 MG PER DAY
  5. KARDEGIC [Concomitant]
     Dosage: 160 MG PER DAY

REACTIONS (5)
  - DYSPNOEA [None]
  - OEDEMA [None]
  - PHLEBITIS [None]
  - PULMONARY EMBOLISM [None]
  - PULMONARY HYPERTENSION [None]
